FAERS Safety Report 5200450-X (Version None)
Quarter: 2006Q4

REPORT INFORMATION
  Report Type: 
  Country: None (occurrence: None)
  Receive Date: 20061016
  Receipt Date: 20060821
  Transmission Date: 20070319
  Serious: No
  Sender: FDA-Public Use
  Company Number: 2006SP003068

PATIENT
  Age: 85 Year
  Sex: Male
  Weight: 65.318 kg

DRUGS (13)
  1. LUNESTA [Suspect]
     Indication: INSOMNIA
     Dosage: SEE IMAGE, ORAL
     Route: 048
     Dates: start: 20060810, end: 20060811
  2. ASPIRIN [Concomitant]
  3. OXYBUTYNIN [Concomitant]
  4. PROSCAR [Concomitant]
  5. TAMSULOSIN HCL [Concomitant]
  6. QUINAPRIL [Concomitant]
  7. NEURONTIN [Concomitant]
  8. OXYCONTIN [Concomitant]
  9. WARFARIN SODIUM [Concomitant]
  10. SIMVASTATIN [Concomitant]
  11. TYLENOL EXTRA-STRENGTH [Concomitant]
  12. SENOKOT [Concomitant]
  13. COLACE [Concomitant]

REACTIONS (2)
  - ASTHENIA [None]
  - DIZZINESS [None]
